FAERS Safety Report 15543052 (Version 1)
Quarter: 2018Q4

REPORT INFORMATION
  Report Type: Spontaneous
  Country: FR (occurrence: FR)
  Receive Date: 20181023
  Receipt Date: 20181023
  Transmission Date: 20190205
  Serious: Yes (Hospitalization)
  Sender: FDA-Public Use
  Company Number: FR-PFIZER INC-2018414820

PATIENT
  Age: 51 Year
  Sex: Female

DRUGS (14)
  1. CARBOPLATIN. [Suspect]
     Active Substance: CARBOPLATIN
     Indication: BRONCHIAL CARCINOMA
     Dosage: 470 MG, CYCLIC
     Route: 042
     Dates: start: 20180726, end: 20180816
  2. LASILIX [FUROSEMIDE] [Concomitant]
     Route: 048
  3. SYMBICORT [Concomitant]
     Active Substance: BUDESONIDE\FORMOTEROL FUMARATE DIHYDRATE
     Dosage: UNK, (400 ?G / 12 ?G TWICE DAILY)
     Route: 055
  4. MEDROL [Suspect]
     Active Substance: METHYLPREDNISOLONE
     Dosage: 48 MG, 1X/DAY
     Route: 048
     Dates: start: 20180726, end: 20180728
  5. VITAMIN B12 [Suspect]
     Active Substance: CYANOCOBALAMIN
     Indication: CHEMOTHERAPY TOXICITY ATTENUATION
     Dosage: 1 MG, SINGLE
     Route: 030
     Dates: start: 20180717, end: 20180717
  6. AIROMIR [SALBUTAMOL SULFATE] [Concomitant]
     Dosage: 100 UG, AS NEEDED (100 ?G IN CASE OF ASTHMA ATTACK)
     Route: 055
  7. VARUBY [Suspect]
     Active Substance: ROLAPITANT
     Indication: PROPHYLAXIS OF NAUSEA AND VOMITING
     Dosage: 180 MG, 1X/DAY
     Route: 048
     Dates: start: 20180426
  8. ALIMTA [Suspect]
     Active Substance: PEMETREXED DISODIUM
     Indication: BRONCHIAL CARCINOMA
     Dosage: 750 MG, CYCLIC
     Route: 042
     Dates: start: 20180726, end: 20180816
  9. SPECIAFOLDINE [Suspect]
     Active Substance: FOLIC ACID
     Indication: CHEMOTHERAPY TOXICITY ATTENUATION
     Dosage: 0.4 MG, 1X/DAY
     Route: 048
     Dates: start: 20180717
  10. INEXIUM [ESOMEPRAZOLE MAGNESIUM] [Concomitant]
     Dosage: 20 MG, 1X/DAY
     Route: 048
  11. ALPRAZOLAM. [Concomitant]
     Active Substance: ALPRAZOLAM
     Dosage: 0.5 MG, 1X/DAY
     Route: 048
  12. SEROPLEX [Concomitant]
     Active Substance: ESCITALOPRAM OXALATE
     Dosage: 10 MG, 1X/DAY
     Route: 048
  13. COUMADINE [Concomitant]
     Active Substance: WARFARIN SODIUM
     Dosage: 4 MG, 1X/DAY
     Route: 048
  14. KEPPRA [Concomitant]
     Active Substance: LEVETIRACETAM
     Dosage: 1000 MG, 1X/DAY
     Route: 048

REACTIONS (1)
  - Hepatocellular injury [Recovering/Resolving]

NARRATIVE: CASE EVENT DATE: 20180814
